FAERS Safety Report 12322401 (Version 1)
Quarter: 2016Q2

REPORT INFORMATION
  Report Type: Report from Study
  Country: BR (occurrence: BR)
  Receive Date: 20160502
  Receipt Date: 20160502
  Transmission Date: 20160815
  Serious: Yes (Other)
  Sender: FDA-Public Use
  Company Number: BR-JNJFOC-20160426780

PATIENT
  Sex: Female

DRUGS (1)
  1. SIMPONI [Suspect]
     Active Substance: GOLIMUMAB
     Indication: RHEUMATOID ARTHRITIS
     Route: 058
     Dates: start: 20140710, end: 201604

REACTIONS (3)
  - Chikungunya virus infection [Unknown]
  - Oropharyngeal pain [Unknown]
  - Flavivirus infection [Unknown]

NARRATIVE: CASE EVENT DATE: 2016
